FAERS Safety Report 12870892 (Version 3)
Quarter: 2018Q1

REPORT INFORMATION
  Report Type: Report from Study
  Country: US (occurrence: US)
  Receive Date: 20161020
  Receipt Date: 20180105
  Transmission Date: 20180508
  Serious: No
  Sender: FDA-Public Use
  Company Number: US-AMGEN-USASL2016137106

PATIENT
  Age: 77 Year
  Sex: Female

DRUGS (1)
  1. REPATHA [Suspect]
     Active Substance: EVOLOCUMAB
     Indication: BLOOD CHOLESTEROL INCREASED
     Dosage: 140 MG, Q2WK
     Route: 030

REACTIONS (5)
  - Injection site swelling [Unknown]
  - Incorrect route of drug administration [Unknown]
  - Bursitis [Not Recovered/Not Resolved]
  - Injection site pain [Unknown]
  - Injection site rash [Recovered/Resolved]
